FAERS Safety Report 9579847 (Version 2)
Quarter: 2013Q4

REPORT INFORMATION
  Report Type: Spontaneous
  Country: FI (occurrence: FI)
  Receive Date: 20131002
  Receipt Date: 20131010
  Transmission Date: 20140711
  Serious: Yes (Hospitalization, Other)
  Sender: FDA-Public Use
  Company Number: FI-AMGEN-FINSP2013068436

PATIENT
  Age: 80 Year
  Sex: Female

DRUGS (8)
  1. MIMPARA [Suspect]
     Indication: PRODUCT USED FOR UNKNOWN INDICATION
     Dosage: 30 MG, QD
     Route: 065
     Dates: start: 2002
  2. LITHIUM [Concomitant]
  3. THYROXINE [Concomitant]
  4. MIACALCIC [Concomitant]
  5. NORSPAN                            /00444001/ [Concomitant]
  6. CALCIUM [Concomitant]
  7. LAXOBERON [Concomitant]
  8. ATIVAN [Concomitant]

REACTIONS (4)
  - Gastrointestinal tube insertion [Unknown]
  - Dysphagia [Unknown]
  - Mental disorder [Unknown]
  - Dehydration [Unknown]
